FAERS Safety Report 13692837 (Version 4)
Quarter: 2017Q3

REPORT INFORMATION
  Report Type: Report from Study
  Country: JP (occurrence: JP)
  Receive Date: 20170627
  Receipt Date: 20170830
  Transmission Date: 20171127
  Serious: Yes (Other)
  Sender: FDA-Public Use
  Company Number: JP-SUN PHARMACEUTICAL INDUSTRIES LTD-2017US-143931

PATIENT
  Age: 55 Year
  Sex: Male
  Weight: 62.4 kg

DRUGS (2)
  1. ROSUVASTATIN/EZETIMIBE [Suspect]
     Active Substance: EZETIMIBE\ROSUVASTATIN
     Indication: LOW DENSITY LIPOPROTEIN ABNORMAL
  2. ROSUVASTATIN/EZETIMIBE [Suspect]
     Active Substance: EZETIMIBE\ROSUVASTATIN
     Indication: HYPERCHOLESTEROLAEMIA
     Dosage: 10/2.5MG, QD
     Route: 048
     Dates: start: 20160817

REACTIONS (1)
  - Intestinal adenocarcinoma [Recovered/Resolved]

NARRATIVE: CASE EVENT DATE: 20170404
